FAERS Safety Report 8379337-X (Version None)
Quarter: 2012Q2

REPORT INFORMATION
  Report Type: 
  Country: None (occurrence: None)
  Receive Date: 20120523
  Receipt Date: 20120518
  Transmission Date: 20120825
  Serious: Yes (Other)
  Sender: FDA-Public Use
  Company Number: PHEH2008US04346

PATIENT
  Sex: Female
  Weight: 76.644 kg

DRUGS (21)
  1. FOSAMAX [Concomitant]
  2. CALCIUM [Concomitant]
  3. FLAGYL [Concomitant]
  4. RADIATION THERAPY [Concomitant]
  5. CEFTIN [Concomitant]
     Dosage: 250 MG, BID
  6. DEPO-MEDROL [Concomitant]
     Dosage: 250 MG, UNK
     Route: 030
  7. NEURONTIN [Concomitant]
     Dosage: 300 MG, TID
     Route: 048
  8. KYTRIL [Concomitant]
     Dosage: UNK
  9. AREDIA [Suspect]
     Route: 042
  10. FEMARA [Concomitant]
     Dosage: 2.5 MG, UNK
  11. ADRIAMYCIN PFS [Concomitant]
     Dosage: UNK
  12. PREVACID [Concomitant]
     Dosage: 30 MG BY MOUTH DAILY
     Dates: start: 20050315
  13. ZOFRAN [Concomitant]
     Dosage: UNK
  14. MULTI-VITAMINS [Concomitant]
  15. VICODIN [Concomitant]
  16. ARANESP [Concomitant]
     Dosage: UNK
  17. CELEBREX [Concomitant]
     Dosage: 200 MG, ONCE/SINGLE
  18. AMOXICILLIN [Concomitant]
  19. MAGIC MOUTHWASH [Concomitant]
     Dosage: UNK
     Dates: start: 20050315
  20. CYTOXAN [Concomitant]
     Dosage: UNK
  21. MEGACE [Concomitant]
     Dosage: 4 MG
     Dates: start: 20050315

REACTIONS (44)
  - PAIN IN EXTREMITY [None]
  - TINNITUS [None]
  - ANXIETY [None]
  - BASAL CELL CARCINOMA [None]
  - ARTHROPATHY [None]
  - LUMBAR RADICULOPATHY [None]
  - RADICULOPATHY [None]
  - OTITIS MEDIA [None]
  - DERMOID CYST [None]
  - LACERATION [None]
  - VERTEBRAL FORAMINAL STENOSIS [None]
  - DYSPEPSIA [None]
  - MUSCLE SPASMS [None]
  - FURUNCLE [None]
  - OSTEONECROSIS OF JAW [None]
  - INJURY [None]
  - DISABILITY [None]
  - PAIN [None]
  - GINGIVAL INFECTION [None]
  - SKIN PAPILLOMA [None]
  - NEUROPATHY PERIPHERAL [None]
  - HYDROMYELIA [None]
  - POST PROCEDURAL COMPLICATION [None]
  - BREAST CYST [None]
  - DENTAL CARIES [None]
  - HEADACHE [None]
  - HYPERKERATOSIS [None]
  - INTERVERTEBRAL DISC DEGENERATION [None]
  - SPINAL OSTEOARTHRITIS [None]
  - VITAMIN D DEFICIENCY [None]
  - RASH [None]
  - ORAL INFECTION [None]
  - SKIN LESION [None]
  - TOOTH DISORDER [None]
  - OVARIAN CYST [None]
  - OSTEOPOROSIS [None]
  - PELVIC ADHESIONS [None]
  - LENTIGO [None]
  - SQUAMOUS CELL CARCINOMA OF SKIN [None]
  - HYPERTENSION [None]
  - EPIGASTRIC DISCOMFORT [None]
  - FIBROADENOMA OF BREAST [None]
  - BREAST CALCIFICATIONS [None]
  - INTERVERTEBRAL DISC PROTRUSION [None]
